FAERS Safety Report 8474233-1 (Version None)
Quarter: 2012Q2

REPORT INFORMATION
  Report Type: 
  Country: None (occurrence: None)
  Receive Date: 20120628
  Receipt Date: 20120618
  Transmission Date: 20120825
  Serious: Yes (Other)
  Sender: FDA-Public Use
  Company Number: US-JNJFOC-20120314730

PATIENT
  Sex: Male
  Weight: 108.86 kg

DRUGS (12)
  1. DURAGESIC-100 [Suspect]
     Route: 062
     Dates: start: 20070101, end: 20080101
  2. MORPHINE [Suspect]
     Route: 048
     Dates: start: 20050101
  3. DURAGESIC-100 [Suspect]
     Indication: PAIN
     Route: 062
  4. OXCARBAZEPINE [Concomitant]
     Indication: CONVULSION
     Route: 048
  5. VIMPAT [Suspect]
     Indication: CONVULSION
     Route: 048
     Dates: start: 20110101
  6. MORPHINE [Suspect]
     Indication: PAIN
     Route: 048
     Dates: start: 20050101
  7. DURAGESIC-100 [Suspect]
     Route: 062
     Dates: start: 20090101, end: 20100101
  8. DURAGESIC-100 [Suspect]
     Route: 062
     Dates: start: 20100101
  9. DURAGESIC-100 [Suspect]
     Route: 062
     Dates: start: 20090101, end: 20090101
  10. DURAGESIC-100 [Suspect]
     Route: 062
  11. DURAGESIC-100 [Suspect]
     Route: 062
  12. FENTANYL TRASNSDERMAL SYSTEM [Suspect]
     Indication: PAIN
     Route: 062
     Dates: start: 20080101, end: 20090101

REACTIONS (8)
  - APPLICATION SITE EROSION [None]
  - PAIN [None]
  - APPLICATION SITE REACTION [None]
  - DRUG INEFFECTIVE [None]
  - WRONG TECHNIQUE IN DRUG USAGE PROCESS [None]
  - CONTUSION [None]
  - PRODUCT QUALITY ISSUE [None]
  - CONVULSION [None]
